FAERS Safety Report 5635079-2 (Version None)
Quarter: 2008Q1

REPORT INFORMATION
  Report Type: 
  Country: None (occurrence: None)
  Receive Date: 20080222
  Receipt Date: 20080212
  Transmission Date: 20080703
  Serious: Yes (Death, Other)
  Sender: FDA-Public Use
  Company Number: US-PFIZER INC-2005022758

PATIENT
  Sex: Female
  Weight: 136.1 kg

DRUGS (4)
  1. CELEBREX [Suspect]
     Indication: ARTHRALGIA
  2. DIABETA [Concomitant]
  3. ANTIHYPERTENSIVES [Concomitant]
  4. DIURETICS [Concomitant]

REACTIONS (6)
  - CARDIAC FAILURE [None]
  - DECREASED APPETITE [None]
  - MALAISE [None]
  - PAIN [None]
  - RENAL FAILURE [None]
  - WEIGHT DECREASED [None]
